FAERS Safety Report 14785181 (Version 1)
Quarter: 2018Q2

REPORT INFORMATION
  Report Type: Spontaneous
  Country: ES (occurrence: ES)
  Receive Date: 20180420
  Receipt Date: 20180420
  Transmission Date: 20180711
  Serious: Yes (Hospitalization)
  Sender: FDA-Public Use
  Company Number: ES-TEVA-2018-ES-883510

PATIENT
  Age: 80 Year
  Sex: Female

DRUGS (9)
  1. LEVEMIR 100 U/ML, SOLUCION INYECTABLE EN UNA PLUMA PRECARGADA (FLEXPEN [Concomitant]
     Route: 058
  2. OSVAREN 435 MG / 235 MG COMPRIMIDOS RECUBIERTOS CON PELICULA , 180 COM [Concomitant]
     Route: 048
  3. TRYPTIZOL 10 MG COMPRIMIDOS RECUBIERTOS CON PELICULA, 24 COMPRIMIDOS [Concomitant]
     Route: 048
  4. CLOPIDOGREL [Suspect]
     Active Substance: CLOPIDOGREL BISULFATE
     Indication: ISCHAEMIC CARDIOMYOPATHY
     Route: 048
     Dates: start: 2010, end: 20160425
  5. CLEXANE 40 MG (4.000 UI) SOLUCION INYECTABLE EN AMPOLLA , 10 AMPOLLAS [Interacting]
     Active Substance: ENOXAPARIN SODIUM
     Route: 058
     Dates: start: 20160422, end: 20160425
  6. ADIRO 100 MG COMPRIMIDOS GASTRORRESISTENTES EFG , 30 COMPRIMIDOS [Interacting]
     Active Substance: ASPIRIN
     Indication: ISCHAEMIC CARDIOMYOPATHY
     Route: 048
     Dates: start: 2010
  7. BELOKEN 100 MG COMPRIMIDOS, 40 COMPRIMIDOS [Concomitant]
     Route: 048
  8. ANAGASTRA 40 MG COMPRIMIDOS GASTRORRESISTENTES , 14 COMPRIMIDOS [Concomitant]
     Route: 048
  9. INEGY 10 MG/20 MG COMPRIMIDOS , 100 COMPRIMIDOS [Concomitant]
     Route: 048

REACTIONS (4)
  - Lower gastrointestinal haemorrhage [Recovered/Resolved]
  - Hypotension [Recovered/Resolved]
  - Syncope [Recovered/Resolved]
  - Drug interaction [Unknown]

NARRATIVE: CASE EVENT DATE: 20160425
